FAERS Safety Report 9431130 (Version 2)
Quarter: 2013Q3

REPORT INFORMATION
  Report Type: Spontaneous
  Country: US (occurrence: US)
  Receive Date: 20130730
  Receipt Date: 20130806
  Transmission Date: 20140515
  Serious: Yes (Hospitalization, Other)
  Sender: FDA-Public Use
  Company Number: US-ROXANE LABORATORIES, INC.-2013-RO-01279RO

PATIENT
  Age: 11 Month
  Sex: Female

DRUGS (1)
  1. PROPRANOLOL [Suspect]
     Indication: WOLFF-PARKINSON-WHITE SYNDROME CONGENITAL
     Dates: start: 201211

REACTIONS (4)
  - Heart rate decreased [Recovered/Resolved]
  - Blood glucose decreased [Recovered/Resolved]
  - Drug effect increased [Unknown]
  - Product quality issue [Unknown]
